FAERS Safety Report 9475758 (Version 1)
Quarter: 2013Q3

REPORT INFORMATION
  Report Type: Spontaneous
  Country: US (occurrence: None)
  Receive Date: 20130822
  Receipt Date: 20130822
  Transmission Date: 20140515
  Serious: Yes (Hospitalization)
  Sender: FDA-Public Use
  Company Number: None

PATIENT
  Age: 66 Year
  Sex: Male

DRUGS (3)
  1. INCIVEK [Suspect]
  2. PEGASYS PROCLICK [Concomitant]
     Dosage: 2 TABLETS TID ORAL
     Route: 048
     Dates: start: 20130701, end: 20130821
  3. RIBAVIRIN [Concomitant]

REACTIONS (3)
  - Dehydration [None]
  - Oropharyngeal pain [None]
  - Haemoptysis [None]
